FAERS Safety Report 19585606 (Version 2)
Quarter: 2022Q1

REPORT INFORMATION
  Report Type: Spontaneous
  Country: US (occurrence: US)
  Receive Date: 20210720
  Receipt Date: 20220314
  Transmission Date: 20220423
  Serious: No
  Sender: FDA-Public Use
  Company Number: US-PFIZER INC-2021857249

PATIENT
  Age: 67 Year
  Sex: Female

DRUGS (1)
  1. TOFACITINIB [Suspect]
     Active Substance: TOFACITINIB
     Indication: Antiinflammatory therapy
     Dosage: UNK, TWICE A DAY (BID)

REACTIONS (6)
  - Drug ineffective [Unknown]
  - Axillary pain [Unknown]
  - Limb discomfort [Unknown]
  - Breast pain [Unknown]
  - Breast discomfort [Unknown]
  - Off label use [Unknown]
